FAERS Safety Report 19388987 (Version 1)
Quarter: 2021Q2

REPORT INFORMATION
  Report Type: Spontaneous
  Country: US (occurrence: US)
  Receive Date: 20210607
  Receipt Date: 20210607
  Transmission Date: 20210717
  Serious: No
  Sender: FDA-Public Use
  Company Number: US-FDC LIMITED-2020RIS00238

PATIENT
  Sex: Female
  Weight: 49.43 kg

DRUGS (15)
  1. REFRESH [Concomitant]
     Active Substance: UNSPECIFIED INGREDIENT
     Dosage: UNK, AS NEEDED
  2. NAPROXEN. [Concomitant]
     Active Substance: NAPROXEN
     Dosage: PERIODICALLY AS NEEDED FOR PAIN
  3. ASPIRIN. [Concomitant]
     Active Substance: ASPIRIN
     Dosage: 81 MG, 1X/DAY
  4. AMOXICILLIN. [Concomitant]
     Active Substance: AMOXICILLIN
     Dosage: 2000 MG/ PERIODICALLY
  5. TYLENOL [Concomitant]
     Active Substance: ACETAMINOPHEN
     Dosage: PERIODICALLY AS NEEDED FOR PAIN
  6. ROSUVASTATIN. [Concomitant]
     Active Substance: ROSUVASTATIN
     Dosage: 20 MG / EVERY OTHER DAY
  7. ALDACTONE [Concomitant]
     Active Substance: SPIRONOLACTONE
     Dosage: 25 MG, 1X/DAY
  8. METOPROLOL TARTRATE. [Concomitant]
     Active Substance: METOPROLOL TARTRATE
     Dosage: 25 MG, 2X/DAY
  9. VITAMIN D [Concomitant]
     Active Substance: VITAMIN D NOS
     Dosage: 1 DOSAGE UNITS, 1X/DAY
  10. OCUVITE [Concomitant]
     Active Substance: VITAMINS
     Dosage: ^AVOIDS TAKING IT REGULARLY^
  11. TIMOLOL MALEATE. [Suspect]
     Active Substance: TIMOLOL MALEATE
     Indication: GLAUCOMA
     Dosage: 1 DROP, 2X/DAY (MORNING, EVENING) IN BOTH EYES
     Route: 047
     Dates: start: 20200510
  12. VITAMIN B12 [Concomitant]
     Active Substance: CYANOCOBALAMIN
     Dosage: ^NOT TAKEN REGULARLY^
  13. PREMARIN VAGINAL [Concomitant]
     Active Substance: ESTROGENS, CONJUGATED
     Dosage: UNK, 1X/WEEK/ AS NEEDED
  14. DULCOLAX NOS [Concomitant]
     Active Substance: BISACODYL OR DOCUSATE SODIUM
     Dosage: COUPLE OF TIMES PER MONTH
  15. LUMIGAN [Concomitant]
     Active Substance: BIMATOPROST
     Dosage: 1 DROP, 1X/DAY AT NIGHT
     Route: 047

REACTIONS (3)
  - Eye pain [Not Recovered/Not Resolved]
  - Weight increased [Not Recovered/Not Resolved]
  - Eye irritation [Not Recovered/Not Resolved]

NARRATIVE: CASE EVENT DATE: 202005
